FAERS Safety Report 9518452 (Version 2)
Quarter: 2013Q4

REPORT INFORMATION
  Report Type: Spontaneous
  Country: AR (occurrence: AR)
  Receive Date: 20130912
  Receipt Date: 20131203
  Transmission Date: 20140711
  Serious: Yes (Hospitalization)
  Sender: FDA-Public Use
  Company Number: AR-AMGEN-ARGSP2013063670

PATIENT
  Age: 74 Year
  Sex: Female

DRUGS (9)
  1. ENBREL [Suspect]
     Indication: RHEUMATOID ARTHRITIS
     Dosage: 50 MG, WEEKLY
     Route: 065
     Dates: start: 20110513, end: 201306
  2. DELTISON [Concomitant]
     Dosage: 32 MG, DAILY
     Route: 048
  3. PILOCARPINE [Concomitant]
     Indication: SJOGREN^S SYNDROME
     Dosage: 5 MG, UNK
  4. PREGABALIN [Concomitant]
     Dosage: UNK
  5. BEZALIP [Concomitant]
     Dosage: UNK
  6. URSODEOXYCHOLIC ACID [Concomitant]
     Dosage: UNK
  7. CLONAZEPAM [Concomitant]
     Dosage: UNK
  8. LEVOTHYROXINE [Concomitant]
     Indication: HYPOTHYROIDISM
     Dosage: UNK
  9. OMEPRAZOL                          /00661201/ [Concomitant]
     Dosage: UNK

REACTIONS (8)
  - Hypokinesia [Recovering/Resolving]
  - Hypotonia [Recovering/Resolving]
  - Fall [Recovering/Resolving]
  - Muscular weakness [Recovering/Resolving]
  - Arthralgia [Recovering/Resolving]
  - Arthropathy [Recovering/Resolving]
  - Finger deformity [Recovered/Resolved]
  - Spinal disorder [Recovering/Resolving]
